FAERS Safety Report 23376141 (Version 1)
Quarter: 2024Q1

REPORT INFORMATION
  Report Type: Spontaneous
  Country: US (occurrence: US)
  Receive Date: 20240108
  Receipt Date: 20240108
  Transmission Date: 20240409
  Serious: No
  Sender: FDA-Public Use
  Company Number: US-SA-SAC20240104001443

PATIENT
  Sex: Female
  Weight: 54.43 kg

DRUGS (8)
  1. DUPIXENT [Suspect]
     Active Substance: DUPILUMAB
     Indication: Eosinophilic oesophagitis
     Dosage: 300 MG, QW
     Route: 058
  2. TRIAMCINOLONE [Concomitant]
     Active Substance: TRIAMCINOLONE
  3. BUPROPION [Concomitant]
     Active Substance: BUPROPION
  4. GABAPENTIN [Concomitant]
     Active Substance: GABAPENTIN
  5. ALPRAZOLAM [Concomitant]
     Active Substance: ALPRAZOLAM
  6. CLONAZEPAM [Concomitant]
     Active Substance: CLONAZEPAM
  7. PANTOPRAZOLE [Concomitant]
     Active Substance: PANTOPRAZOLE
  8. BUDESONIDE [Concomitant]
     Active Substance: BUDESONIDE

REACTIONS (1)
  - Injection site reaction [Not Recovered/Not Resolved]
